FAERS Safety Report 4560410-9 (Version None)
Quarter: 2005Q1

REPORT INFORMATION
  Report Type: 
  Country: None (occurrence: None)
  Receive Date: 20050125
  Receipt Date: 20050114
  Transmission Date: 20050727
  Serious: Yes (Other)
  Sender: FDA-Public Use
  Company Number: US-MERCK-0501USA02763

PATIENT

DRUGS (1)
  1. ELSPAR [Suspect]
     Route: 051

REACTIONS (3)
  - CONVULSION [None]
  - SUPERIOR SAGITTAL SINUS THROMBOSIS [None]
  - TRANSIENT ISCHAEMIC ATTACK [None]
